FAERS Safety Report 4964660-9 (Version None)
Quarter: 2006Q1

REPORT INFORMATION
  Report Type: 
  Country: None (occurrence: None)
  Receive Date: 20060331
  Receipt Date: 20060320
  Transmission Date: 20060701
  Serious: Yes (Life-Threatening, Other)
  Sender: FDA-Public Use
  Company Number: DE200603005276

PATIENT
  Age: 50 Year
  Sex: Female

DRUGS (3)
  1. ZYPREXA [Suspect]
     Indication: SCHIZOPHRENIA
     Dosage: 20 MG, DAILY (1/D),ORAL; 15 MG, DAILY (1/D), ORAL
     Route: 048
     Dates: start: 20051215, end: 20060126
  2. ZYPREXA [Suspect]
     Indication: SCHIZOPHRENIA
     Dosage: 20 MG, DAILY (1/D),ORAL; 15 MG, DAILY (1/D), ORAL
     Route: 048
     Dates: start: 20060127, end: 20060211
  3. LORAZEPAM [Concomitant]

REACTIONS (7)
  - CONVULSION [None]
  - FALL [None]
  - HYPONATRAEMIA [None]
  - LOSS OF CONSCIOUSNESS [None]
  - PNEUMONIA [None]
  - POLYDIPSIA [None]
  - VOMITING [None]
